FAERS Safety Report 4989438-1 (Version None)
Quarter: 2006Q2

REPORT INFORMATION
  Report Type: 
  Country: None (occurrence: None)
  Receive Date: 20060426
  Receipt Date: 20060418
  Transmission Date: 20061013
  Serious: Yes (Life-Threatening, Hospitalization)
  Sender: FDA-Public Use
  Company Number: US200604001445

PATIENT
  Sex: Female

DRUGS (3)
  1. CYMBALTA [Suspect]
     Indication: NEUROPATHY
     Dosage: 60 MG, DAILY (1/D)
     Dates: end: 20060401
  2. TYLENOL [Concomitant]
  3. LORTAB [Concomitant]

REACTIONS (2)
  - CHOLESTASIS [None]
  - HEPATITIS [None]
